FAERS Safety Report 17468272 (Version 1)
Quarter: 2020Q1

REPORT INFORMATION
  Report Type: Spontaneous
  Country: AU (occurrence: AU)
  Receive Date: 20200227
  Receipt Date: 20200227
  Transmission Date: 20200409
  Serious: Yes (Hospitalization, Other)
  Sender: FDA-Public Use
  Company Number: ALC2020AU001469

PATIENT
  Age: 68 Year
  Sex: Female
  Weight: 101.4 kg

DRUGS (11)
  1. OXYBUPROCAINE HYDROCHLORIDE [Suspect]
     Active Substance: BENOXINATE HYDROCHLORIDE
     Indication: ANAESTHESIA
     Dosage: 0.4 %
     Route: 065
     Dates: start: 20170131
  2. ATORVASTATIN [Concomitant]
     Active Substance: ATORVASTATIN
     Indication: OPHTHALMOLOGIC TREATMENT
     Dosage: UNK
     Route: 047
     Dates: start: 20181123
  3. LUCENTIS [Concomitant]
     Active Substance: RANIBIZUMAB
     Indication: OPHTHALMOLOGIC TREATMENT
     Dosage: UNK
     Route: 047
     Dates: start: 201712, end: 20190207
  4. PHENYLEPHRINE [Suspect]
     Active Substance: PHENYLEPHRINE HYDROCHLORIDE
     Indication: ANAESTHESIA
     Dosage: 0.400 %
     Route: 065
     Dates: start: 20170131
  5. AFLIBERCEPT [Concomitant]
     Active Substance: AFLIBERCEPT
     Indication: DIABETIC RETINOPATHY
     Dosage: 2.000 MG
     Route: 031
     Dates: start: 20190104
  6. AFLIBERCEPT [Concomitant]
     Active Substance: AFLIBERCEPT
     Indication: CYSTOID MACULAR OEDEMA
     Dosage: UNK
     Route: 031
     Dates: start: 20190207
  7. AFLIBERCEPT [Concomitant]
     Active Substance: AFLIBERCEPT
     Dosage: 2 UNK
     Route: 031
     Dates: start: 20170210
  8. DAPRODUSTAT [Suspect]
     Active Substance: DAPRODUSTAT
     Indication: NEPHROGENIC ANAEMIA
     Dosage: UNK
     Route: 065
     Dates: start: 20180713
  9. TROPICAMIDE. [Suspect]
     Active Substance: TROPICAMIDE
     Indication: ANAESTHESIA
     Dosage: 0.4 %
     Route: 065
     Dates: start: 20170131
  10. AFLIBERCEPT [Concomitant]
     Active Substance: AFLIBERCEPT
     Dosage: UNK
     Route: 031
     Dates: start: 20190308
  11. CHLORHEXIDINE [Suspect]
     Active Substance: CHLORHEXIDINE
     Indication: ANTIBIOTIC PROPHYLAXIS
     Dosage: 0.1 %
     Route: 065
     Dates: start: 20170421, end: 20190207

REACTIONS (2)
  - Conjunctival disorder [Recovered/Resolved]
  - Drug hypersensitivity [Recovered/Resolved]

NARRATIVE: CASE EVENT DATE: 20190104
